FAERS Safety Report 13287114 (Version 2)
Quarter: 2017Q1

REPORT INFORMATION
  Report Type: Spontaneous
  Country: US (occurrence: US)
  Receive Date: 20170302
  Receipt Date: 20170315
  Transmission Date: 20170428
  Serious: Yes (Hospitalization, Other)
  Sender: FDA-Public Use
  Company Number: US-AMGEN-USASP2017030209

PATIENT
  Age: 75 Year
  Sex: Male
  Weight: 74.84 kg

DRUGS (2)
  1. XGEVA [Suspect]
     Active Substance: DENOSUMAB
     Indication: METASTASES TO BONE
     Dosage: 120 MG,(EVERY 28 DAYS) UNK
     Route: 058
     Dates: start: 201503, end: 201609
  2. INLYTA [Suspect]
     Active Substance: AXITINIB
     Indication: RENAL CANCER
     Dosage: 15 MG, BID
     Route: 048
     Dates: end: 201702

REACTIONS (3)
  - Osteomyelitis [Unknown]
  - Renal failure [Unknown]
  - Osteonecrosis of jaw [Unknown]

NARRATIVE: CASE EVENT DATE: 201612
